FAERS Safety Report 18901882 (Version 4)
Quarter: 2021Q1

REPORT INFORMATION
  Report Type: Spontaneous
  Country: RO (occurrence: RO)
  Receive Date: 20210217
  Receipt Date: 20210329
  Transmission Date: 20210420
  Serious: Yes (Death, Hospitalization)
  Sender: FDA-Public Use
  Company Number: RO-BIOGEN-2021BI00977532

PATIENT
  Age: 1 Year
  Sex: Female
  Weight: 8.7 kg

DRUGS (4)
  1. PARACETAMOL [Concomitant]
     Active Substance: ACETAMINOPHEN
     Indication: PRODUCT USED FOR UNKNOWN INDICATION
     Route: 065
  2. ZOLGENSMA [Suspect]
     Active Substance: ONASEMNOGENE ABEPARVOVEC-XIOI
     Indication: PRODUCT USED FOR UNKNOWN INDICATION
     Route: 065
  3. SPINRAZA [Suspect]
     Active Substance: NUSINERSEN
     Indication: SPINAL MUSCULAR ATROPHY
     Route: 037
     Dates: start: 201907, end: 202009
  4. ZOLGENSMA [Suspect]
     Active Substance: ONASEMNOGENE ABEPARVOVEC-XIOI
     Route: 065
     Dates: end: 202011

REACTIONS (9)
  - Acute kidney injury [Fatal]
  - Cardiac arrest [Fatal]
  - Respiratory arrest [Fatal]
  - Thrombocytopenia [Unknown]
  - Epistaxis [Unknown]
  - Blood creatinine increased [Unknown]
  - Hepatic enzyme increased [Unknown]
  - Multiple organ dysfunction syndrome [Fatal]
  - Blood urea increased [Unknown]

NARRATIVE: CASE EVENT DATE: 202011
